FAERS Safety Report 4510545-1 (Version None)
Quarter: 2004Q4

REPORT INFORMATION
  Report Type: 
  Country: None (occurrence: None)
  Receive Date: 20041122
  Receipt Date: 20041110
  Transmission Date: 20050328
  Serious: Yes (Death, Other)
  Sender: FDA-Public Use
  Company Number: 2004-11-0599

PATIENT
  Age: 64 Year
  Sex: Male

DRUGS (2)
  1. ISOSORBIDE MONONITRATE EXTENDED RELEASE TABLET [Suspect]
     Dosage: ORAL
     Route: 048
  2. SILDENAFIL CITRATE [Suspect]
     Indication: ERECTILE DYSFUNCTION
     Dosage: ORAL
     Route: 048

REACTIONS (3)
  - MYOCARDIAL ISCHAEMIA [None]
  - SYNCOPE [None]
  - VENTRICULAR ARRHYTHMIA [None]
